FAERS Safety Report 5494412-5 (Version None)
Quarter: 2007Q4

REPORT INFORMATION
  Report Type: 
  Country: None (occurrence: None)
  Receive Date: 20071022
  Receipt Date: 20071012
  Transmission Date: 20080405
  Serious: Yes (Other)
  Sender: FDA-Public Use
  Company Number: 2007SP020904

PATIENT
  Age: 60 Year
  Sex: Male

DRUGS (1)
  1. INTRON A [Suspect]
     Indication: MALIGNANT MELANOMA
     Dosage: 3 MIU; TIW; SC
     Route: 058
     Dates: start: 20060818

REACTIONS (4)
  - HYPERTHERMIA [None]
  - LOSS OF CONSCIOUSNESS [None]
  - PYELONEPHRITIS ACUTE [None]
  - WEIGHT DECREASED [None]
